FAERS Safety Report 21911047 (Version 1)
Quarter: 2023Q1

REPORT INFORMATION
  Report Type: Spontaneous
  Country: JP (occurrence: JP)
  Receive Date: 20230125
  Receipt Date: 20230125
  Transmission Date: 20230417
  Serious: Yes (Hospitalization, Other)
  Sender: FDA-Public Use
  Company Number: JP-BRISTOL-MYERS SQUIBB COMPANY-BMS-2019-114264

PATIENT
  Age: 42 Year
  Sex: Male

DRUGS (2)
  1. YERVOY [Suspect]
     Active Substance: IPILIMUMAB
     Indication: Renal cell carcinoma
     Dosage: 50 MILLIGRAM, 4 TIMES
     Route: 041
     Dates: start: 20190705
  2. OPDIVO [Suspect]
     Active Substance: NIVOLUMAB
     Indication: Renal cell carcinoma
     Dosage: 240 MILLIGRAM, 6 TIMES
     Route: 041
     Dates: start: 20190705

REACTIONS (3)
  - Pancreatitis [Recovering/Resolving]
  - Diarrhoea [Recovering/Resolving]
  - Cystitis noninfective [Recovering/Resolving]

NARRATIVE: CASE EVENT DATE: 20191126
